FAERS Safety Report 5679834-1 (Version None)
Quarter: 2008Q1

REPORT INFORMATION
  Report Type: 
  Country: None (occurrence: None)
  Receive Date: 20080321
  Receipt Date: 20080311
  Transmission Date: 20080703
  Serious: No
  Sender: FDA-Public Use
  Company Number: 2008-173699-NL

PATIENT
  Age: 21 Year
  Sex: Female

DRUGS (1)
  1. ETONOGESTREL [Suspect]
     Indication: CONTRACEPTION
     Dosage: DF
     Route: 059
     Dates: start: 20070101

REACTIONS (5)
  - HEADACHE [None]
  - OEDEMA [None]
  - PHOTOPHOBIA [None]
  - SKIN STRIAE [None]
  - VOGT-KOYANAGI-HARADA SYNDROME [None]
